FAERS Safety Report 8346257-6 (Version None)
Quarter: 2012Q2

REPORT INFORMATION
  Report Type: 
  Country: None (occurrence: None)
  Receive Date: 20120509
  Receipt Date: 20120504
  Transmission Date: 20120825
  Serious: No
  Sender: FDA-Public Use
  Company Number: US-PFIZER INC-2012110307

PATIENT
  Sex: Female
  Weight: 54 kg

DRUGS (3)
  1. AROMASIN [Suspect]
     Indication: BREAST CANCER
     Dosage: 25 MG, 1X/DAY
     Dates: start: 20100101, end: 20120101
  2. AROMASIN [Suspect]
     Dosage: 25 MG, 1X/DAY
     Dates: start: 20120101, end: 20120101
  3. XALATAN [Concomitant]
     Indication: GLAUCOMA
     Dosage: 5 MG, UNK

REACTIONS (2)
  - PRURITUS [None]
  - RASH [None]
